FAERS Safety Report 8269302-5 (Version None)
Quarter: 2012Q2

REPORT INFORMATION
  Report Type: 
  Country: None (occurrence: None)
  Receive Date: 20120409
  Receipt Date: 20120328
  Transmission Date: 20120825
  Serious: Yes (Hospitalization)
  Sender: FDA-Public Use
  Company Number: FR-ROCHE-1054198

PATIENT
  Sex: Female

DRUGS (7)
  1. ACTEMRA [Suspect]
     Indication: RHEUMATOID ARTHRITIS
     Route: 042
     Dates: start: 20100401, end: 20110101
  2. MABTHERA [Suspect]
     Indication: RHEUMATOID ARTHRITIS
     Route: 042
     Dates: start: 20110930, end: 20111028
  3. ACTEMRA [Suspect]
     Route: 042
     Dates: start: 20110525, end: 20111011
  4. ACETAMINOPHEN AND TRAMADOL HCL [Concomitant]
  5. BONIVA [Concomitant]
  6. KETOPROFEN [Concomitant]
  7. PREDNISONE TAB [Concomitant]

REACTIONS (1)
  - RASH [None]
